FAERS Safety Report 5136150-4 (Version None)
Quarter: 2006Q4

REPORT INFORMATION
  Report Type: 
  Country: None (occurrence: None)
  Receive Date: 20061027
  Receipt Date: 20061016
  Transmission Date: 20070319
  Serious: Yes (Other)
  Sender: FDA-Public Use
  Company Number: US-JNJFOC-20061004696

PATIENT
  Age: 88 Year
  Sex: Female

DRUGS (9)
  1. FENTANYL CITRATE [Suspect]
     Indication: DRUG USE FOR UNKNOWN INDICATION
     Dosage: 3 PATCHES
     Route: 062
  2. APAP TAB [Concomitant]
     Indication: DRUG USE FOR UNKNOWN INDICATION
     Route: 065
  3. IRON SUPPLEMENT [Concomitant]
     Route: 065
  4. ANTINEOPLASTIC DRUGS [Concomitant]
     Route: 065
  5. ANGIOTENSIN RECEPTOR BLOCKER [Concomitant]
     Route: 065
  6. ORAL HYPOGLYCEMIC [Concomitant]
     Route: 065
  7. THYROID PREP [Concomitant]
     Route: 065
  8. CALCIUM SUPPLEMENT [Concomitant]
     Route: 065
  9. ASPIRIN [Concomitant]
     Route: 065

REACTIONS (6)
  - CONFUSIONAL STATE [None]
  - HEPATIC FAILURE [None]
  - LETHARGY [None]
  - PNEUMONIA [None]
  - SEPTIC SHOCK [None]
  - WRONG TECHNIQUE IN DRUG USAGE PROCESS [None]
